FAERS Safety Report 6343694-6 (Version None)
Quarter: 2009Q3

REPORT INFORMATION
  Report Type: 
  Country: None (occurrence: None)
  Receive Date: 20090908
  Receipt Date: 20090828
  Transmission Date: 20100115
  Serious: Yes (Death, Hospitalization)
  Sender: FDA-Public Use
  Company Number: A0721932A

PATIENT
  Age: 7 Year
  Sex: Female
  Weight: 22.8 kg

DRUGS (9)
  1. ADVAIR HFA [Suspect]
     Indication: ASTHMA
     Dosage: 2PUFF TWICE PER DAY
     Route: 055
     Dates: start: 20071029
  2. TRIAMCINOLONE [Concomitant]
  3. CEPHALEXIN [Concomitant]
  4. LEVALBUTEROL HCL [Concomitant]
  5. EUCERIN [Concomitant]
  6. HYDROCORTISONE [Concomitant]
  7. HYDROXYZINE [Concomitant]
  8. SINGULAIR [Concomitant]
  9. ALBUTEROL [Concomitant]

REACTIONS (6)
  - ANOXIC ENCEPHALOPATHY [None]
  - ASPIRATION [None]
  - ASTHMA [None]
  - CARDIO-RESPIRATORY ARREST [None]
  - LUNG HYPERINFLATION [None]
  - RESPIRATORY FAILURE [None]
